FAERS Safety Report 6881419-6 (Version None)
Quarter: 2010Q3

REPORT INFORMATION
  Report Type: 
  Country: None (occurrence: None)
  Receive Date: 20100728
  Receipt Date: 20100728
  Transmission Date: 20110219
  Serious: Yes (Disabling, Other)
  Sender: FDA-Public Use
  Company Number: None

PATIENT
  Age: 67 Year
  Sex: Female
  Weight: 51.4 kg

DRUGS (1)
  1. BOTOX [Suspect]
     Indication: SKIN COSMETIC PROCEDURE
     Dosage: 6 UNITS ONCE SYRINGE
     Route: 059
     Dates: start: 20100506

REACTIONS (14)
  - DRY EYE [None]
  - DRY MOUTH [None]
  - DYSPHAGIA [None]
  - DYSPNOEA [None]
  - HEADACHE [None]
  - INFLUENZA LIKE ILLNESS [None]
  - INJECTION SITE PAIN [None]
  - LIP SWELLING [None]
  - MUSCULAR WEAKNESS [None]
  - PAIN [None]
  - PARALYSIS [None]
  - PNEUMONIA [None]
  - SENSATION OF HEAVINESS [None]
  - TINNITUS [None]
